FAERS Safety Report 10225589 (Version 1)
Quarter: 2014Q1

REPORT INFORMATION
  Report Type: Spontaneous
  Country: US (occurrence: None)
  Receive Date: 20140306
  Receipt Date: 20140306
  Transmission Date: 20141002
  Serious: Yes (Hospitalization, Other)
  Sender: FDA-Public Use
  Company Number: B

PATIENT
  Age: 73 Year
  Sex: Male

DRUGS (2)
  1. REVLIMID (LENALIDOMIDE) (5 MILLIGRAM, CAPSULES) [Suspect]
     Indication: MYELODYSPLASTIC SYNDROME
     Dosage: 5 MG, 1 IN 1 D, PO?
     Route: 048
     Dates: start: 201308
  2. CHEMOTHERAPY (UNKNOWN) [Concomitant]

REACTIONS (3)
  - Fluid retention [None]
  - Cardiac failure congestive [None]
  - Drug ineffective [None]
